FAERS Safety Report 7995676-6 (Version None)
Quarter: 2011Q4

REPORT INFORMATION
  Report Type: 
  Country: None (occurrence: None)
  Receive Date: 20111220
  Receipt Date: 20111213
  Transmission Date: 20120403
  Serious: Yes (Life-Threatening, Hospitalization, Other)
  Sender: FDA-Public Use
  Company Number: JP-ASTRAZENECA-2011SE55273

PATIENT
  Age: 10589 Day
  Sex: Female

DRUGS (8)
  1. EVE QUICK TABLET [Suspect]
     Dosage: 120 DF UID
     Route: 048
     Dates: start: 20110505, end: 20110505
  2. ZOLOFT [Suspect]
     Dosage: 800MG UID
     Route: 048
     Dates: start: 20110505, end: 20110505
  3. ROHYPNOL [Suspect]
     Dosage: 16MG UID
     Route: 048
     Dates: start: 20110505, end: 20110505
  4. SEROQUEL [Suspect]
     Indication: DEPRESSION
     Route: 048
     Dates: start: 20110505, end: 20110505
  5. LEXOTAN [Suspect]
     Dosage: 40MG UID
     Route: 048
     Dates: start: 20110505, end: 20110505
  6. SEROQUEL [Suspect]
     Indication: SCHIZOPHRENIA
     Route: 048
     Dates: start: 20110505, end: 20110505
  7. IBUPROFEN [Suspect]
     Route: 048
     Dates: start: 20110505
  8. HALCION [Suspect]
     Dosage: 8DF UID
     Route: 048
     Dates: start: 20110505, end: 20110505

REACTIONS (3)
  - SUICIDE ATTEMPT [None]
  - MULTIPLE DRUG OVERDOSE INTENTIONAL [None]
  - DISTRIBUTIVE SHOCK [None]
